FAERS Safety Report 10479287 (Version 1)
Quarter: 2014Q3

REPORT INFORMATION
  Report Type: Spontaneous
  Country: KR (occurrence: KR)
  Receive Date: 20140926
  Receipt Date: 20140926
  Transmission Date: 20150326
  Serious: Yes (Death)
  Sender: FDA-Public Use
  Company Number: KR-DSJP-DSJ-2014-122836

PATIENT

DRUGS (3)
  1. HYPERLIPIDEMIA DRUG WITH UNKNOWN SPECIFIC DRUG NAME [Suspect]
     Active Substance: UNSPECIFIED INGREDIENT
     Indication: PRODUCT USED FOR UNKNOWN INDICATION
     Dosage: UNK
     Route: 065
  2. ASTHMA DRUG WITH UNKNOWN SPECIFIC DRUG NAME [Suspect]
     Active Substance: UNSPECIFIED INGREDIENT
     Indication: PRODUCT USED FOR UNKNOWN INDICATION
     Dosage: UNK
     Route: 065
  3. OLMESARTAN MEDOXOMIL [Suspect]
     Active Substance: OLMESARTAN MEDOXOMIL
     Indication: PRODUCT USED FOR UNKNOWN INDICATION
     Dosage: 20MG/DAY
     Route: 065

REACTIONS (3)
  - Death [Fatal]
  - Sudden death [None]
  - Hyperkalaemia [Fatal]
